FAERS Safety Report 20857753 (Version 1)
Quarter: 2022Q2

REPORT INFORMATION
  Report Type: Spontaneous
  Country: PT (occurrence: PT)
  Receive Date: 20220521
  Receipt Date: 20220521
  Transmission Date: 20220721
  Serious: Yes (Other)
  Sender: FDA-Public Use
  Company Number: None

PATIENT
  Age: 51 Year
  Sex: Male

DRUGS (3)
  1. FLUOXETINE HYDROCHLORIDE [Suspect]
     Active Substance: FLUOXETINE HYDROCHLORIDE
     Indication: Depression
     Dosage: FLUOXETINE TEVA 20 MG CAPSULES
     Route: 048
     Dates: start: 20220216, end: 202204
  2. Zolpidem Aurovitas [Concomitant]
     Dosage: 10 MILLIGRAM DAILY; 1 TABLET IN THE EVENING STARTED AT THE SAME TIME AS FLUOXETINE
     Route: 048
     Dates: start: 202202
  3. TRAZODONE HYDROCHLORIDE [Concomitant]
     Active Substance: TRAZODONE HYDROCHLORIDE
     Indication: Insomnia
     Dosage: 2/3 OF THE TABLET AT NIGHT
     Route: 048
     Dates: start: 2021

REACTIONS (8)
  - Rectal haemorrhage [Recovering/Resolving]
  - Myalgia [Recovering/Resolving]
  - Gastrointestinal pain [Recovering/Resolving]
  - Constipation [Recovering/Resolving]
  - Insomnia [Recovering/Resolving]
  - Drug withdrawal headache [Recovering/Resolving]
  - Nightmare [Recovering/Resolving]
  - Dry mouth [Recovering/Resolving]

NARRATIVE: CASE EVENT DATE: 20220201
